FAERS Safety Report 8960824 (Version 1)
Quarter: 2012Q4

REPORT INFORMATION
  Report Type: Spontaneous
  Country: US (occurrence: None)
  Receive Date: 20121128
  Receipt Date: 20121128
  Transmission Date: 20130627
  Serious: Yes (Other)
  Sender: FDA-Public Use
  Company Number: 001407737A

PATIENT
  Age: 79 Year
  Sex: Female

DRUGS (1)
  1. OCTINOXATE, OXYBENZONE [Suspect]
     Dosage: once daily dermal
     Dates: start: 20121023, end: 20121026

REACTIONS (3)
  - Eye irritation [None]
  - Ocular hyperaemia [None]
  - Visual acuity reduced [None]
